FAERS Safety Report 12933474 (Version 2)
Quarter: 2017Q1

REPORT INFORMATION
  Report Type: Spontaneous
  Country: JP (occurrence: JP)
  Receive Date: 20161111
  Receipt Date: 20170323
  Transmission Date: 20170428
  Serious: Yes (Death)
  Sender: FDA-Public Use
  Company Number: JP-MALLINCKRODT-T201605670

PATIENT
  Age: 56 Year
  Sex: Female
  Weight: 48 kg

DRUGS (53)
  1. FLORID [Concomitant]
     Active Substance: MICONAZOLE
     Route: 048
  2. PRIMPERAN [Concomitant]
     Active Substance: METOCLOPRAMIDE HYDROCHLORIDE
     Dosage: UNK
     Route: 051
  3. PREDONINE [Concomitant]
     Active Substance: PREDNISOLONE
     Dosage: 40 MG, QD
     Dates: start: 20160827
  4. CLARITHROMYCIN. [Concomitant]
     Active Substance: CLARITHROMYCIN
     Route: 048
  5. DICLOFENAC [Concomitant]
     Active Substance: DICLOFENAC
     Route: 048
  6. ATARAX-P [Concomitant]
     Active Substance: HYDROXYZINE HYDROCHLORIDE
     Route: 048
  7. OMEPRAZOLE. [Concomitant]
     Active Substance: OMEPRAZOLE
     Route: 051
  8. OPSO [Concomitant]
     Active Substance: MORPHINE HYDROCHLORIDE
     Route: 048
  9. CALONAL [Concomitant]
     Active Substance: ACETAMINOPHEN
     Route: 048
  10. DRAMAMINE [Concomitant]
     Active Substance: DIMENHYDRINATE
     Route: 048
  11. DENOTAS [Concomitant]
     Active Substance: CALCIUM CARBONATE\CHOLECALCIFEROL\MAGNESIUM CARBONATE
     Route: 048
  12. METHADONE [Suspect]
     Active Substance: METHADONE HYDROCHLORIDE
     Indication: CANCER PAIN
     Dosage: 45 MG DAILY DOSE
     Route: 048
     Dates: start: 20161004, end: 20161011
  13. OPDIVO [Suspect]
     Active Substance: NIVOLUMAB
     Indication: PRODUCT USED FOR UNKNOWN INDICATION
     Dosage: 153 MG, 153 MG DAILY DOSE
     Route: 041
     Dates: start: 20160803, end: 20160803
  14. PREDONINE [Concomitant]
     Active Substance: PREDNISOLONE
     Dosage: 60 MG UNK
     Route: 051
     Dates: start: 20160827, end: 20161018
  15. RISPERIDONE. [Concomitant]
     Active Substance: RISPERIDONE
     Route: 048
  16. BENAMBAX [Concomitant]
     Active Substance: PENTAMIDINE
     Route: 051
  17. ACELIO [Concomitant]
     Active Substance: ACETAMINOPHEN
     Route: 042
  18. CRAVIT [Concomitant]
     Active Substance: LEVOFLOXACIN
     Route: 041
  19. TRANEXAMIC [Concomitant]
     Route: 051
  20. ZYPREXA [Concomitant]
     Active Substance: OLANZAPINE
     Route: 048
  21. GASTEEL [Concomitant]
     Route: 048
  22. XYLOCAINE [Concomitant]
     Active Substance: LIDOCAINE HYDROCHLORIDE
     Route: 051
  23. LAC-B [Concomitant]
     Active Substance: BIFIDOBACTERIUM SPP.
     Route: 048
  24. CARBAZOCHROME [Concomitant]
     Active Substance: CARBAZOCHROME
  25. SOL-MELCORT [Concomitant]
     Active Substance: METHYLPREDNISOLONE SODIUM SUCCINATE
     Dosage: 500 MG
     Route: 051
     Dates: start: 20160927, end: 20160927
  26. HYDROCORTONE [Concomitant]
     Active Substance: HYDROCORTISONE
     Dosage: 200 MG, UNK
     Route: 051
     Dates: start: 20161017
  27. SOLANAX [Concomitant]
     Active Substance: ALPRAZOLAM
     Route: 048
  28. CARBOCISTEINE [Concomitant]
     Active Substance: CARBOCYSTEINE
     Route: 048
  29. AMBROXOL [Concomitant]
     Active Substance: AMBROXOL
     Route: 048
  30. PANVITAN [Concomitant]
     Route: 048
  31. MIYA-BM [Concomitant]
     Active Substance: CLOSTRIDIUM BUTYRICUM SPORES STRAIN M-55
     Route: 048
  32. SOLDEM 1 [Concomitant]
     Active Substance: DEXTROSE\SODIUM CHLORIDE\SODIUM LACTATE
     Route: 051
  33. HARTMANN [Concomitant]
     Active Substance: CALCIUM CHLORIDE\POTASSIUM CHLORIDE\SODIUM CHLORIDE\SODIUM LACTATE
     Route: 051
  34. MORPHINE HYDROCHLORIDE HYDRATE [Suspect]
     Active Substance: MORPHINE HYDROCHLORIDE
     Indication: PRODUCT USED FOR UNKNOWN INDICATION
     Dosage: UNK
     Route: 058
     Dates: start: 20160908
  35. CALCIUM CHLORIDE HYDRATE [Concomitant]
     Active Substance: CALCIUM CHLORIDE
     Route: 051
  36. NOVAMIN [Concomitant]
     Active Substance: PROCHLORPERAZINE MALEATE
     Route: 048
  37. EBUTOL [Concomitant]
     Active Substance: ETHAMBUTOL HYDROCHLORIDE
     Route: 048
  38. METHADONE [Suspect]
     Active Substance: METHADONE HYDROCHLORIDE
     Dosage: 60 MG DAILY DOSE
     Route: 048
     Dates: start: 20161012, end: 20161014
  39. OPDIVO [Suspect]
     Active Substance: NIVOLUMAB
     Dosage: 150 MG, 150 MG DAILY DOSE
     Route: 041
     Dates: start: 20160817, end: 20160817
  40. PRIMPERAN [Concomitant]
     Active Substance: METOCLOPRAMIDE HYDROCHLORIDE
     Route: 048
  41. VESICARE [Concomitant]
     Active Substance: SOLIFENACIN SUCCINATE
     Route: 048
  42. SOL-MELCORT [Concomitant]
     Active Substance: METHYLPREDNISOLONE SODIUM SUCCINATE
     Dosage: 500 MG
     Route: 051
     Dates: start: 20161016, end: 20161016
  43. SOL-MELCORT [Concomitant]
     Active Substance: METHYLPREDNISOLONE SODIUM SUCCINATE
     Dosage: 500 MG
     Route: 051
     Dates: start: 20160906, end: 20160906
  44. REMICADE [Concomitant]
     Active Substance: INFLIXIMAB
     Dosage: 240 MG
     Route: 051
     Dates: start: 20161017
  45. MS CONTIN [Concomitant]
     Active Substance: MORPHINE SULFATE
     Dosage: UNK
     Route: 048
     Dates: start: 20160813, end: 20160904
  46. RIFAMPICIN [Concomitant]
     Active Substance: RIFAMPIN
     Route: 048
  47. PL [Concomitant]
     Active Substance: ACETAMINOPHEN\CAFFEINE\PROMETHAZINE\SALICYLAMIDE
     Route: 048
  48. DIHYDROCODEINE PHOSPHATE [Concomitant]
     Active Substance: DIHYDROCODEINE PHOSPHATE
     Route: 048
  49. LYRICA [Concomitant]
     Active Substance: PREGABALIN
     Route: 048
  50. TAKEPRON [Concomitant]
     Active Substance: LANSOPRAZOLE
     Route: 048
  51. ELNEOPA NO.2 [Concomitant]
     Active Substance: AMINO ACIDS\CARBOHYDRATES\ELECTROLYTES NOS\VITAMINS
     Route: 051
  52. HUMULIN R [Concomitant]
     Active Substance: INSULIN HUMAN
     Route: 051
  53. BFLUID [Concomitant]
     Active Substance: AMINO ACIDS\DEXTROSE\ELECTROLYTES NOS\VITAMINS
     Route: 051

REACTIONS (1)
  - Megacolon [Fatal]

NARRATIVE: CASE EVENT DATE: 20161013
